FAERS Safety Report 5315484-4 (Version None)
Quarter: 2007Q2

REPORT INFORMATION
  Report Type: 
  Country: None (occurrence: None)
  Receive Date: 20070503
  Receipt Date: 20070501
  Transmission Date: 20071010
  Serious: Yes (Hospitalization)
  Sender: FDA-Public Use
  Company Number: TW-BRISTOL-MYERS SQUIBB COMPANY-13766472

PATIENT
  Age: 74 Year
  Sex: Male

DRUGS (3)
  1. HYDROXYUREA [Suspect]
     Indication: CHRONIC MYELOID LEUKAEMIA
     Route: 048
  2. ALLOPURINOL [Suspect]
     Indication: CHRONIC MYELOID LEUKAEMIA
     Route: 048
  3. RADIATION THERAPY [Concomitant]
     Indication: SPLENOMEGALY

REACTIONS (1)
  - TUMOUR LYSIS SYNDROME [None]
